FAERS Safety Report 25826491 (Version 2)
Quarter: 2025Q4

REPORT INFORMATION
  Report Type: Report from Study
  Country: US (occurrence: US)
  Receive Date: 20250920
  Receipt Date: 20251216
  Transmission Date: 20260118
  Serious: Yes (Other)
  Sender: ABBVIE
  Company Number: US-ABBVIE-6466463

PATIENT
  Age: 69 Year
  Sex: Male

DRUGS (1)
  1. SKYRIZI [Suspect]
     Active Substance: RISANKIZUMAB-RZAA
     Indication: Psoriasis
     Route: 058
     Dates: start: 20240314, end: 202508

REACTIONS (3)
  - Cerebrovascular accident [Recovering/Resolving]
  - Hemiplegia [Unknown]
  - Speech disorder [Unknown]

NARRATIVE: CASE EVENT DATE: 20250801
